FAERS Safety Report 6175395-1 (Version None)
Quarter: 2009Q2

REPORT INFORMATION
  Report Type: 
  Country: None (occurrence: None)
  Receive Date: 20090430
  Receipt Date: 20090204
  Transmission Date: 20091009
  Serious: Yes (Other)
  Sender: FDA-Public Use
  Company Number: US-ASTRAZENECA-2009UW03320

PATIENT
  Age: 35 Year
  Sex: Female

DRUGS (3)
  1. NEXIUM [Suspect]
     Route: 042
  2. ZOFRAN [Concomitant]
  3. DILANTIN [Concomitant]

REACTIONS (1)
  - STEVENS-JOHNSON SYNDROME [None]
